FAERS Safety Report 8933525 (Version 1)
Quarter: 2012Q4

REPORT INFORMATION
  Report Type: 
  Country: BR (occurrence: BR)
  Receive Date: 20121129
  Receipt Date: 20121129
  Transmission Date: 20130627
  Serious: No
  Sender: FDA-Public Use
  Company Number: BR-PFIZER INC-2012268911

PATIENT
  Age: 68 Year
  Sex: Female

DRUGS (4)
  1. LYRICA [Suspect]
     Indication: NEUROPATHY
     Dosage: 150 mg (one capsule), 1x/day
     Route: 048
     Dates: start: 20121001, end: 20121024
  2. LYRICA [Suspect]
     Dosage: 75 mg (one capsule), 1x/day
     Dates: start: 201211
  3. NEURONTIN [Concomitant]
     Dosage: strength 300mg
     Dates: start: 20091109
  4. TRAMAL [Concomitant]
     Dosage: strength 50mg
     Dates: start: 20091109

REACTIONS (2)
  - Somnolence [Unknown]
  - Weight increased [Unknown]
